FAERS Safety Report 15449862 (Version 1)
Quarter: 2018Q4

REPORT INFORMATION
  Report Type: Spontaneous
  Country: GB (occurrence: GB)
  Receive Date: 20181001
  Receipt Date: 20181001
  Transmission Date: 20190204
  Serious: Yes (Other)
  Sender: FDA-Public Use
  Company Number: GB-DRREDDYS-GER/UKI/18/0104336

PATIENT
  Age: 66 Year
  Sex: Female
  Weight: 62.59 kg

DRUGS (3)
  1. OMEPRAZOLE. [Concomitant]
     Active Substance: OMEPRAZOLE
     Indication: PRODUCT USED FOR UNKNOWN INDICATION
  2. ADCAL-D3 [Concomitant]
     Active Substance: CALCIUM CARBONATE\CHOLECALCIFEROL
     Indication: PRODUCT USED FOR UNKNOWN INDICATION
  3. AMLODIPINE [Suspect]
     Active Substance: AMLODIPINE BESYLATE
     Indication: HYPERTENSION
     Route: 048
     Dates: start: 201712, end: 20180419

REACTIONS (14)
  - Fatigue [Recovered/Resolved]
  - Abdominal distension [Recovered/Resolved]
  - Anxiety [Recovered/Resolved]
  - Back pain [Recovered/Resolved]
  - Paraesthesia [Recovered/Resolved]
  - Insomnia [Recovered/Resolved with Sequelae]
  - Pruritus [Recovered/Resolved]
  - Cough [Recovered/Resolved]
  - Malaise [Recovered/Resolved]
  - Arthralgia [Recovered/Resolved]
  - Asthenia [Recovered/Resolved]
  - Chest pain [Recovered/Resolved]
  - Dyspnoea [Unknown]
  - Oropharyngeal pain [Recovered/Resolved]

NARRATIVE: CASE EVENT DATE: 20171227
